FAERS Safety Report 4326941-1 (Version None)
Quarter: 2004Q1

REPORT INFORMATION
  Report Type: 
  Country: None (occurrence: None)
  Receive Date: 20040319
  Receipt Date: 20040126
  Transmission Date: 20041129
  Serious: No
  Sender: FDA-Public Use
  Company Number: US-JNJFOC-20040105630

PATIENT
  Age: 15 Year
  Sex: Female

DRUGS (16)
  1. ORTHO EVRA [Suspect]
     Indication: HORMONE LEVEL ABNORMAL
     Dosage: 1 DOSE(S), 3 IN 4 WEEK, TRANSDERMAL
     Route: 062
  2. TOBI [Suspect]
     Indication: CYSTIC FIBROSIS
     Dosage: 300 MG
     Dates: start: 20030901, end: 20030928
  3. OVCON-35 [Suspect]
  4. YASMIN (PETIBELLE FILMTABLETTEN) [Concomitant]
  5. LEXAPRO (ALL OTHER THERAPEUTIC PRODUCTS) [Concomitant]
  6. PREVACID [Concomitant]
  7. CELEBREX [Concomitant]
  8. DORYX [Concomitant]
  9. SEROQUEL [Concomitant]
  10. MIRALAX [Concomitant]
  11. CIPRO [Concomitant]
  12. DEPAKOATE (VALPROATE SEMISODIUM) [Concomitant]
  13. SINUVENT (PHENYLPROPANOLAMINE W/GUAIFENESIN) [Concomitant]
  14. XOPENEX [Concomitant]
  15. CREON [Concomitant]
  16. VIOKASE (PANCRELIPASE) [Concomitant]

REACTIONS (1)
  - NAUSEA [None]
